FAERS Safety Report 6831024-2 (Version None)
Quarter: 2010Q3

REPORT INFORMATION
  Report Type: 
  Country: None (occurrence: None)
  Receive Date: 20100712
  Receipt Date: 20100702
  Transmission Date: 20110219
  Serious: Yes (Other)
  Sender: FDA-Public Use
  Company Number: BR-JNJFOC-20100601238

PATIENT
  Sex: Male

DRUGS (1)
  1. REMINYL ER [Suspect]
     Indication: DEMENTIA
     Route: 065

REACTIONS (4)
  - DIARRHOEA [None]
  - HYPERTENSION [None]
  - NAUSEA [None]
  - VOMITING [None]
